FAERS Safety Report 25820262 (Version 1)
Quarter: 2025Q3

REPORT INFORMATION
  Report Type: Spontaneous
  Country: CN (occurrence: CN)
  Receive Date: 20250919
  Receipt Date: 20250919
  Transmission Date: 20251021
  Serious: Yes (Hospitalization)
  Sender: ROCHE
  Company Number: CN-ROCHE-10000388730

PATIENT
  Age: 61 Year
  Sex: Female

DRUGS (1)
  1. RITUXIMAB [Suspect]
     Active Substance: RITUXIMAB
     Indication: IgA nephropathy
     Route: 065

REACTIONS (8)
  - Pneumonia [Recovered/Resolved]
  - Sepsis [Recovered/Resolved]
  - Pneumocystis jirovecii infection [Recovered/Resolved]
  - Klebsiella infection [Recovered/Resolved]
  - Human bocavirus infection [Recovered/Resolved]
  - Cytomegalovirus infection [Recovered/Resolved]
  - Bacterial infection [Recovered/Resolved]
  - Candida infection [Recovered/Resolved]
